FAERS Safety Report 5716189-8 (Version None)
Quarter: 2008Q2

REPORT INFORMATION
  Report Type: 
  Country: None (occurrence: None)
  Receive Date: 20080424
  Receipt Date: 20080416
  Transmission Date: 20081010
  Serious: Yes (Other)
  Sender: FDA-Public Use
  Company Number: PHEH2008US03822

PATIENT
  Sex: Male
  Weight: 119.27 kg

DRUGS (1)
  1. EXFORGE [Suspect]
     Dosage: 5MGALMO/160MGDIO
     Dates: start: 20080404

REACTIONS (3)
  - ANXIETY [None]
  - MENTAL IMPAIRMENT [None]
  - PSYCHOTIC DISORDER [None]
